FAERS Safety Report 5818541-9 (Version None)
Quarter: 2008Q3

REPORT INFORMATION
  Report Type: 
  Country: None (occurrence: None)
  Receive Date: 20080718
  Receipt Date: 20080704
  Transmission Date: 20090109
  Serious: Yes (Disabling)
  Sender: FDA-Public Use
  Company Number: 107

PATIENT
  Sex: Female

DRUGS (1)
  1. FLUNISOLIDE [Suspect]
     Indication: NASAL CONGESTION
     Dosage: 2 SPRAYS, 2 TIMES A DAY, NASAL
     Route: 045

REACTIONS (1)
  - ANOSMIA [None]
